FAERS Safety Report 8886836 (Version 3)
Quarter: 2013Q1

REPORT INFORMATION
  Report Type: Spontaneous
  Country: US (occurrence: US)
  Receive Date: 20121105
  Receipt Date: 20130315
  Transmission Date: 20140127
  Serious: Yes (Death)
  Sender: FDA-Public Use
  Company Number: US-ROCHE-1148758

PATIENT
  Sex: Female
  Weight: 49.94 kg

DRUGS (6)
  1. RITUXAN [Suspect]
     Indication: RHEUMATOID ARTHRITIS
     Route: 042
     Dates: start: 200801
  2. RITUXAN [Suspect]
     Indication: SYSTEMIC LUPUS ERYTHEMATOSUS
     Route: 042
     Dates: start: 20081202, end: 20120215
  3. CELLCEPT [Suspect]
     Indication: SYSTEMIC LUPUS ERYTHEMATOSUS
     Route: 048
     Dates: start: 20060207, end: 20080921
  4. PREDNISONE [Concomitant]
     Indication: ARTHRALGIA
     Route: 048
     Dates: start: 1999
  5. GABAPENTIN [Concomitant]
     Indication: PARAESTHESIA
     Route: 048
     Dates: start: 20090212
  6. ASPIRIN [Concomitant]
     Route: 050

REACTIONS (7)
  - Progressive multifocal leukoencephalopathy [Fatal]
  - Vasculitis cerebral [Unknown]
  - Joint swelling [Unknown]
  - Butterfly rash [Unknown]
  - Alopecia [Unknown]
  - Asthenia [Unknown]
  - Blindness [Unknown]
